FAERS Safety Report 6424807-4 (Version None)
Quarter: 2009Q4

REPORT INFORMATION
  Report Type: 
  Country: None (occurrence: None)
  Receive Date: 20091103
  Receipt Date: 20091026
  Transmission Date: 20100525
  Serious: Yes (Other)
  Sender: FDA-Public Use
  Company Number: PHEH2009US11119

PATIENT
  Sex: Female
  Weight: 41 kg

DRUGS (10)
  1. EXJADE [Suspect]
     Indication: SICKLE CELL ANAEMIA
     Dosage: 250 MG, TID
     Route: 048
     Dates: start: 20080501, end: 20081201
  2. EXJADE [Suspect]
     Indication: IRON METABOLISM DISORDER
  3. EXJADE [Suspect]
     Indication: SERUM FERRITIN INCREASED
  4. PERCOCET [Concomitant]
     Indication: PAIN
     Dosage: 10 MG, BID
     Route: 048
  5. PHENERGAN ^AVENTIS PHARMA^ [Concomitant]
     Indication: NAUSEA
     Dosage: 25 MG, BID
     Route: 048
  6. CLARINEX                                /DEN/ [Concomitant]
     Dosage: 5 MG, QD
     Route: 048
  7. CALCIUM [Concomitant]
  8. VITAMIN D [Concomitant]
  9. LORTAB [Concomitant]
  10. HYDREA [Concomitant]

REACTIONS (9)
  - AGGRESSION [None]
  - CHEST PAIN [None]
  - CHOLELITHIASIS [None]
  - HEADACHE [None]
  - INAPPROPRIATE SCHEDULE OF DRUG ADMINISTRATION [None]
  - NAUSEA [None]
  - PAIN [None]
  - RASH [None]
  - SKIN EXFOLIATION [None]
